FAERS Safety Report 19969828 (Version 1)
Quarter: 2021Q4

REPORT INFORMATION
  Report Type: Spontaneous
  Country: FR (occurrence: FR)
  Receive Date: 20211019
  Receipt Date: 20211019
  Transmission Date: 20220303
  Serious: Yes (Other)
  Sender: FDA-Public Use
  Company Number: FR-MLMSERVICE-20210929-3129651-1

PATIENT
  Sex: Female

DRUGS (10)
  1. LAMOTRIGINE [Suspect]
     Active Substance: LAMOTRIGINE
     Indication: Febrile convulsion
     Dosage: UNK
     Route: 065
  2. LAMOTRIGINE [Suspect]
     Active Substance: LAMOTRIGINE
     Indication: Generalised tonic-clonic seizure
  3. LEVETIRACETAM [Suspect]
     Active Substance: LEVETIRACETAM
     Indication: Generalised tonic-clonic seizure
     Dosage: UNK
     Route: 065
  4. LEVETIRACETAM [Suspect]
     Active Substance: LEVETIRACETAM
     Indication: Febrile convulsion
  5. TOPIRAMATE [Suspect]
     Active Substance: TOPIRAMATE
     Indication: Generalised tonic-clonic seizure
     Dosage: UNK
     Route: 065
  6. TOPIRAMATE [Suspect]
     Active Substance: TOPIRAMATE
     Indication: Febrile convulsion
  7. CLOBAZAM [Suspect]
     Active Substance: CLOBAZAM
     Indication: Generalised tonic-clonic seizure
     Dosage: UNK
     Route: 065
  8. CLOBAZAM [Suspect]
     Active Substance: CLOBAZAM
     Indication: Febrile convulsion
  9. CARBAMAZEPINE [Suspect]
     Active Substance: CARBAMAZEPINE
     Indication: Generalised tonic-clonic seizure
     Dosage: UNK
     Route: 065
  10. CARBAMAZEPINE [Suspect]
     Active Substance: CARBAMAZEPINE
     Indication: Febrile convulsion

REACTIONS (2)
  - Epilepsy [Recovered/Resolved]
  - Drug ineffective [Unknown]
